FAERS Safety Report 9455236 (Version 3)
Quarter: 2013Q4

REPORT INFORMATION
  Report Type: Spontaneous
  Country: US (occurrence: None)
  Receive Date: 20130702
  Receipt Date: 20131220
  Transmission Date: 20140711
  Serious: Yes (Disabling)
  Sender: FDA-Public Use
  Company Number: 25579

PATIENT
  Age: 56 Year
  Sex: Female
  Weight: 72.58 kg

DRUGS (18)
  1. GLASSIA [Suspect]
     Indication: ALPHA-1 ANTI-TRYPSIN DEFICIENCY
     Route: 042
     Dates: start: 20120404
  2. SPIRIVA [Concomitant]
  3. SYMBICORT [Concomitant]
  4. DULERA INHALER [Concomitant]
  5. REQUIP [Concomitant]
  6. AMBIEN [Concomitant]
  7. LEVALBUTEROL NEBULIZER [Concomitant]
  8. C-PAP [Concomitant]
  9. TUSSIONEX PENNKINETIC [Concomitant]
  10. ERGOCALCIFEROL [Concomitant]
  11. PREDNISONE [Concomitant]
  12. CELEBREX [Concomitant]
  13. PROAIR HFA [Concomitant]
  14. XOPENEX [Concomitant]
  15. VITAMIN D3 [Concomitant]
  16. CALCIUM GLUCONATE [Concomitant]
  17. PANTOPRAZOLE [Concomitant]
  18. DALIRESP [Concomitant]

REACTIONS (16)
  - Diarrhoea [None]
  - Muscle spasms [None]
  - Dyspnoea [None]
  - Deafness unilateral [None]
  - Viral infection [None]
  - Meningioma [None]
  - Sinusitis [None]
  - Headache [None]
  - Blood pressure increased [None]
  - Infusion related reaction [None]
  - Abdominal pain upper [None]
  - Cough [None]
  - Hyperlipidaemia [None]
  - Ear infection [None]
  - Asthma [None]
  - Blood glucose increased [None]
